FAERS Safety Report 11074531 (Version 2)
Quarter: 2015Q3

REPORT INFORMATION
  Report Type: Report from Study
  Country: DE (occurrence: DE)
  Receive Date: 20150429
  Receipt Date: 20150707
  Transmission Date: 20151125
  Serious: Yes (Death, Hospitalization)
  Sender: FDA-Public Use
  Company Number: DE-ABBVIE-15P-062-1382655-00

PATIENT
  Age: 79 Year
  Sex: Male

DRUGS (1)
  1. DUODOPA [Suspect]
     Active Substance: CARBIDOPA\LEVODOPA
     Indication: PARKINSON^S DISEASE
     Dosage: MD: 7.4ML,CRD: 2.9ML/H,ED: 2.4ML
     Route: 050
     Dates: start: 20070306

REACTIONS (2)
  - General physical health deterioration [Fatal]
  - Pneumonia aspiration [Fatal]

NARRATIVE: CASE EVENT DATE: 20150427
